FAERS Safety Report 8561005-2 (Version None)
Quarter: 2012Q3

REPORT INFORMATION
  Report Type: 
  Country: None (occurrence: None)
  Receive Date: 20120802
  Receipt Date: 20120612
  Transmission Date: 20120928
  Serious: No
  Sender: FDA-Public Use
  Company Number: US-BRISTOL-MYERS SQUIBB COMPANY-16684185

PATIENT
  Age: 28 Year
  Sex: Male

DRUGS (1)
  1. REYATAZ [Suspect]
     Indication: HIV INFECTION
     Dosage: LAST DOSE ON 20MAR12

REACTIONS (1)
  - ADVERSE EVENT [None]
